FAERS Safety Report 7494452-0 (Version None)
Quarter: 2011Q2

REPORT INFORMATION
  Report Type: 
  Country: None (occurrence: None)
  Receive Date: 20110520
  Receipt Date: 20110425
  Transmission Date: 20111010
  Serious: Yes (Hospitalization, Other)
  Sender: FDA-Public Use
  Company Number: US-BAYER-2010-004704

PATIENT
  Age: 30 Year
  Sex: Female
  Weight: 82 kg

DRUGS (9)
  1. YAZ [Suspect]
     Indication: CONTRACEPTION
     Dosage: UNK
     Dates: start: 20070101, end: 20100101
  2. HYDROCODONE [Concomitant]
     Dosage: UNK
     Dates: start: 20050101, end: 20100101
  3. YASMIN [Suspect]
     Indication: CONTRACEPTION
     Dosage: UNK
     Dates: start: 20070101, end: 20100101
  4. NEXIUM [Concomitant]
     Dosage: UNK
     Dates: start: 20081028
  5. BUSPIRONE HCL [Concomitant]
     Dosage: UNK
     Dates: start: 20060101
  6. DROSPIRENONE AND ETHINYL ESTRADIOL [Suspect]
     Indication: CONTRACEPTION
     Dosage: UNK
     Dates: start: 20070101, end: 20100101
  7. TRAMADOL HCL [Concomitant]
     Dosage: UNK
     Dates: start: 20060101, end: 20100101
  8. CIPROFLOXACIN [Concomitant]
     Dosage: 250 MG, UNK
     Dates: start: 20081007
  9. PREDNISONE [Concomitant]
     Dosage: 20 MG, UNK
     Dates: start: 20081021

REACTIONS (5)
  - GALLBLADDER NON-FUNCTIONING [None]
  - CHOLECYSTITIS ACUTE [None]
  - INJURY [None]
  - ASTHENIA [None]
  - PAIN [None]
